FAERS Safety Report 16466312 (Version 1)
Quarter: 2019Q2

REPORT INFORMATION
  Report Type: Spontaneous
  Country: US (occurrence: US)
  Receive Date: 20190622
  Receipt Date: 20190622
  Transmission Date: 20190711
  Serious: No
  Sender: FDA-Public Use
  Company Number: US-TEVA-2019-US-1064994

PATIENT
  Sex: Female

DRUGS (1)
  1. RISEDRONATE SODIUM TABLETS [Suspect]
     Active Substance: RISEDRONATE SODIUM
     Dosage: WEEKLY

REACTIONS (5)
  - Eructation [Unknown]
  - Arthritis [Unknown]
  - Weight increased [Unknown]
  - Pain [Unknown]
  - Hiccups [Unknown]
